FAERS Safety Report 8326845-3 (Version None)
Quarter: 2012Q2

REPORT INFORMATION
  Report Type: 
  Country: None (occurrence: None)
  Receive Date: 20120501
  Receipt Date: 20120425
  Transmission Date: 20120825
  Serious: Yes (Life-Threatening, Other)
  Sender: FDA-Public Use
  Company Number: BR-AMGEN-BRASP2012027133

PATIENT
  Age: 46 Year
  Sex: Female
  Weight: 55 kg

DRUGS (3)
  1. PEGASYS [Suspect]
     Indication: HEPATITIS C
     Dosage: 180 MUG, QWK
     Route: 058
     Dates: start: 20110428, end: 20120216
  2. NEUPOGEN [Suspect]
     Indication: AGRANULOCYTOSIS
     Dosage: UNK, QWK
     Route: 058
     Dates: start: 20110602, end: 20120219
  3. RIBAVIRIN [Concomitant]
     Indication: HEPATITIS C
     Dosage: 1 G, QD
     Dates: start: 20110428, end: 20120216

REACTIONS (4)
  - DIABETES MELLITUS [None]
  - HYPOTHYROIDISM [None]
  - DIABETIC KETOACIDOSIS [None]
  - AGRANULOCYTOSIS [None]
